FAERS Safety Report 6437728-8 (Version None)
Quarter: 2009Q4

REPORT INFORMATION
  Report Type: 
  Country: None (occurrence: None)
  Receive Date: 20091112
  Receipt Date: 20091106
  Transmission Date: 20100525
  Serious: Yes (Hospitalization)
  Sender: FDA-Public Use
  Company Number: GB-WYE-H12058609

PATIENT
  Age: 37 Year
  Sex: Male

DRUGS (6)
  1. TAZOCIN [Suspect]
     Indication: NEUTROPENIC SEPSIS
     Dosage: UNKNOWN
     Dates: start: 20080101, end: 20080101
  2. PREDNISOLONE [Concomitant]
     Indication: ADVERSE DRUG REACTION
     Dosage: UNKNOWN
     Dates: start: 20080101
  3. CIPROFLOXACIN [Suspect]
     Indication: NEUTROPENIC SEPSIS
     Dosage: UNKNOWN
     Dates: start: 20080101, end: 20080101
  4. CLINDAMYCIN [Suspect]
     Indication: NEUTROPENIC SEPSIS
     Dosage: UNKNOWN
     Dates: start: 20080101, end: 20080101
  5. METRONIDAZOLE [Suspect]
     Indication: NEUTROPENIC SEPSIS
     Dosage: UNKNOWN
     Dates: start: 20080101, end: 20080101
  6. GENTAMICIN [Suspect]
     Indication: NEUTROPENIC SEPSIS
     Dosage: UNKNOWN
     Dates: start: 20080101, end: 20080101

REACTIONS (1)
  - DRUG RASH WITH EOSINOPHILIA AND SYSTEMIC SYMPTOMS [None]
